FAERS Safety Report 25310645 (Version 1)
Quarter: 2025Q2

REPORT INFORMATION
  Report Type: Report from Study
  Country: FR (occurrence: FR)
  Receive Date: 20250514
  Receipt Date: 20250514
  Transmission Date: 20250717
  Serious: Yes (Hospitalization)
  Sender: EMD SERONO INC
  Company Number: FR-Merck Healthcare KGaA-2025019934

PATIENT
  Age: 7 Year
  Sex: Female
  Weight: 14 kg

DRUGS (1)
  1. SAIZEN [Suspect]
     Active Substance: SOMATROPIN
     Indication: Growth hormone deficiency
     Dosage: LOT EXPIRATION DATE 31-AUG-2026
     Dates: start: 20250403

REACTIONS (3)
  - Epilepsy [Recovered/Resolved]
  - Middle insomnia [Not Recovered/Not Resolved]
  - Lack of injection site rotation [Not Recovered/Not Resolved]

NARRATIVE: CASE EVENT DATE: 20250403
